FAERS Safety Report 11528558 (Version 1)
Quarter: 2015Q3

REPORT INFORMATION
  Report Type: Spontaneous
  Country: GB (occurrence: GB)
  Receive Date: 20150921
  Receipt Date: 20150921
  Transmission Date: 20151125
  Serious: Yes (Other)
  Sender: FDA-Public Use
  Company Number: GB-ALKEM-001213

PATIENT
  Age: 39 Year
  Sex: Male

DRUGS (9)
  1. BEZAFIBRATE [Concomitant]
     Active Substance: BEZAFIBRATE
  2. DEPAKOTE [Concomitant]
     Active Substance: DIVALPROEX SODIUM
     Dosage: CONSTITUENT: VALPROATE SEMISODIUM
  3. DIAZEPAM. [Concomitant]
     Active Substance: DIAZEPAM
  4. QUETIAPINE/QUETIAPINE FUMARATE [Suspect]
     Active Substance: QUETIAPINE FUMARATE
     Indication: BIPOLAR I DISORDER
     Dosage: VARIABLE DOSES
     Route: 048
     Dates: start: 2011
  5. ESCITALOPRAM [Concomitant]
     Active Substance: ESCITALOPRAM OXALATE
  6. MIRTAZAPINE. [Concomitant]
     Active Substance: MIRTAZAPINE
  7. ZOPICLONE [Concomitant]
     Active Substance: ZOPICLONE
  8. RAMIPRIL. [Concomitant]
     Active Substance: RAMIPRIL
  9. SIMVASTATIN. [Concomitant]
     Active Substance: SIMVASTATIN

REACTIONS (2)
  - Proteinuria [Recovered/Resolved]
  - Pancreatitis acute [Unknown]

NARRATIVE: CASE EVENT DATE: 2014
